FAERS Safety Report 11621289 (Version 1)
Quarter: 2015Q4

REPORT INFORMATION
  Report Type: Spontaneous
  Country: US (occurrence: US)
  Receive Date: 20151012
  Receipt Date: 20151012
  Transmission Date: 20160304
  Serious: No
  Sender: FDA-Public Use
  Company Number: US-GLAXOSMITHKLINE-US2015143834

PATIENT
  Age: 48 Year
  Sex: Male

DRUGS (1)
  1. ABREVA [Suspect]
     Active Substance: DOCOSANOL
     Indication: ORAL HERPES
     Dosage: UNK
     Dates: start: 20150930, end: 20151007

REACTIONS (7)
  - Application site haemorrhage [Not Recovered/Not Resolved]
  - Application site scab [Not Recovered/Not Resolved]
  - Condition aggravated [Unknown]
  - Wound [Not Recovered/Not Resolved]
  - Oral herpes [Unknown]
  - Drug administration error [Unknown]
  - Application site pain [Not Recovered/Not Resolved]

NARRATIVE: CASE EVENT DATE: 20151007
